FAERS Safety Report 9521663 (Version 1)
Quarter: 2013Q1

REPORT INFORMATION
  Report Type: Spontaneous
  Country: US (occurrence: None)
  Receive Date: 20130305
  Receipt Date: 20130305
  Transmission Date: 20140127
  Serious: Yes (Disabling, Other)
  Sender: FDA-Public Use
  Company Number: 163-21880-12072941

PATIENT
  Age: 64 Year
  Sex: Female

DRUGS (5)
  1. REVLIMID [Suspect]
     Indication: PLASMA CELL MYELOMA
     Dosage: 25 MG, 21 IN 21 D, PO
     Route: 048
     Dates: start: 200811, end: 2009
  2. NA HC03 (SODIUM BICARBONATE) (650 MILLIGRAM, TABLETS) [Concomitant]
  3. AMLODIPINE (AMLODIPINE) (UNKNOWN) [Concomitant]
  4. FOLIC ACID (FOLIC ACID) (UNKNOWN) [Concomitant]
  5. CALCIUM - MAGNESIUM (CALCIUM W/MAGNESIUM) (TABLETS) [Concomitant]

REACTIONS (4)
  - Asthenia [None]
  - Diarrhoea [None]
  - Renal failure acute [None]
  - Dehydration [None]
